FAERS Safety Report 4457482-9 (Version None)
Quarter: 2004Q3

REPORT INFORMATION
  Report Type: 
  Country: None (occurrence: None)
  Receive Date: 20040921
  Receipt Date: 20040902
  Transmission Date: 20050211
  Serious: Yes (Hospitalization)
  Sender: FDA-Public Use
  Company Number: A0524201A

PATIENT
  Age: 41 Year
  Sex: Male

DRUGS (4)
  1. PAXIL [Suspect]
     Indication: DEPRESSION
     Dosage: 5 MG/PER DAY/ORAL
     Route: 048
     Dates: start: 19960101, end: 20030901
  2. LEXAPRO [Concomitant]
  3. BUSPIRONE HCL [Concomitant]
  4. TEMAZEPAM [Concomitant]

REACTIONS (11)
  - ANXIETY [None]
  - DISEASE RECURRENCE [None]
  - DIZZINESS [None]
  - DRUG WITHDRAWAL SYNDROME [None]
  - DYSKINESIA [None]
  - LIBIDO DECREASED [None]
  - MAJOR DEPRESSION [None]
  - MUSCLE TWITCHING [None]
  - PANIC ATTACK [None]
  - SUICIDAL IDEATION [None]
  - TREMOR [None]
